FAERS Safety Report 8875807 (Version 2)
Quarter: 2013Q1

REPORT INFORMATION
  Report Type: Spontaneous
  Country: US (occurrence: US)
  Receive Date: 20121023
  Receipt Date: 20130114
  Transmission Date: 20140127
  Serious: Yes (Death)
  Sender: FDA-Public Use
  Company Number: US-ROCHE-1133219

PATIENT
  Sex: Male

DRUGS (7)
  1. RAPTIVA [Suspect]
     Indication: PSORIASIS
     Route: 065
  2. RAPTIVA [Suspect]
     Indication: PUSTULAR PSORIASIS
  3. ZINC SULFATE [Concomitant]
  4. PEPCID [Concomitant]
  5. LASIX [Concomitant]
  6. ATENOLOL [Concomitant]
  7. DOXEPIN [Concomitant]
     Route: 065

REACTIONS (1)
  - Death [Fatal]
